FAERS Safety Report 6163566-X (Version None)
Quarter: 2009Q2

REPORT INFORMATION
  Report Type: 
  Country: None (occurrence: None)
  Receive Date: 20090420
  Receipt Date: 20090420
  Transmission Date: 20091009
  Serious: No
  Sender: FDA-Public Use
  Company Number: None

PATIENT
  Age: 64 Year
  Sex: Male
  Weight: 83.9154 kg

DRUGS (1)
  1. GENERIC WELBUTRIN XL 300 WATSON [Suspect]
     Dosage: 300 MG ONCE DAILY PO
     Route: 048

REACTIONS (5)
  - BRUXISM [None]
  - DEPRESSION [None]
  - DISEASE RECURRENCE [None]
  - IRRITABILITY [None]
  - PRODUCT SUBSTITUTION ISSUE [None]
